FAERS Safety Report 5859402-9 (Version None)
Quarter: 2008Q3

REPORT INFORMATION
  Report Type: 
  Country: None (occurrence: None)
  Receive Date: 20080826
  Receipt Date: 20080826
  Transmission Date: 20090109
  Serious: Yes (Disabling)
  Sender: FDA-Public Use
  Company Number: None

PATIENT
  Age: 30 Year
  Sex: Female
  Weight: 97.5234 kg

DRUGS (1)
  1. RITE AID NO-DRIP NASAL SPRAY MAXIMUM [Suspect]
     Indication: SINUSITIS
     Dosage: ONE SPRAY EACH NOSTRAL ONCE NASAL, ONE USE
     Route: 045
     Dates: start: 20080510, end: 20080510

REACTIONS (2)
  - AGEUSIA [None]
  - ANOSMIA [None]
